FAERS Safety Report 6086459-5 (Version None)
Quarter: 2009Q1

REPORT INFORMATION
  Report Type: 
  Country: None (occurrence: None)
  Receive Date: 20090223
  Receipt Date: 20090210
  Transmission Date: 20090719
  Serious: Yes (Other)
  Sender: FDA-Public Use
  Company Number: PHHY2009CA05364

PATIENT
  Sex: Male

DRUGS (2)
  1. RASILEZ [Suspect]
  2. ATACAND [Concomitant]
     Dosage: 16 MG, UNK

REACTIONS (2)
  - BLOOD CREATININE INCREASED [None]
  - BLOOD PRESSURE INCREASED [None]
